FAERS Safety Report 24152271 (Version 1)
Quarter: 2024Q3

REPORT INFORMATION
  Report Type: Spontaneous
  Country: US (occurrence: None)
  Receive Date: 20240729
  Receipt Date: 20240729
  Transmission Date: 20241016
  Serious: Yes (Disabling)
  Sender: Public
  Company Number: None

PATIENT
  Age: 65 Year
  Sex: Female
  Weight: 63 kg

DRUGS (4)
  1. BRILLIANT BLUE G [Suspect]
     Active Substance: BRILLIANT BLUE G
     Indication: Retinal operation
     Dates: start: 20240103, end: 20240103
  2. EFFEXOR [Concomitant]
     Active Substance: VENLAFAXINE HYDROCHLORIDE
  3. POTASSIUM [Concomitant]
     Active Substance: POTASSIUM
  4. HEART BURN MED [Concomitant]

REACTIONS (5)
  - Drug hypersensitivity [None]
  - Visual impairment [None]
  - Product formulation issue [None]
  - Eye injury [None]
  - Impaired quality of life [None]

NARRATIVE: CASE EVENT DATE: 20240103
